FAERS Safety Report 5240036-4 (Version None)
Quarter: 2007Q1

REPORT INFORMATION
  Report Type: 
  Country: None (occurrence: None)
  Receive Date: 20070216
  Receipt Date: 20070207
  Transmission Date: 20070707
  Serious: Yes (Hospitalization)
  Sender: FDA-Public Use
  Company Number: IT-ABBOTT-07P-083-0358685-00

PATIENT
  Sex: Male
  Weight: 70 kg

DRUGS (8)
  1. NORVIR [Suspect]
     Indication: HIV INFECTION
     Route: 048
     Dates: start: 20060325, end: 20061123
  2. NORVIR [Suspect]
     Dates: start: 20070119
  3. LAMIVUDINE [Suspect]
     Indication: HIV INFECTION
     Route: 048
     Dates: start: 20060325, end: 20061123
  4. LAMIVUDINE [Suspect]
     Dates: start: 20070119
  5. DIDANOSINE [Suspect]
     Indication: HIV INFECTION
     Route: 048
     Dates: start: 20060325, end: 20061123
  6. DIDANOSINE [Suspect]
     Dates: start: 20070119
  7. FOSAMPRENAVIR [Suspect]
     Indication: HIV INFECTION
     Route: 048
     Dates: start: 20060325, end: 20061123
  8. FOSAMPRENAVIR [Suspect]
     Dates: start: 20070119

REACTIONS (2)
  - BLOOD ALKALINE PHOSPHATASE INCREASED [None]
  - HYPERBILIRUBINAEMIA [None]
